FAERS Safety Report 24800759 (Version 2)
Quarter: 2025Q1

REPORT INFORMATION
  Report Type: Spontaneous
  Country: US (occurrence: US)
  Receive Date: 20250102
  Receipt Date: 20250108
  Transmission Date: 20250409
  Serious: Yes (Life-Threatening, Hospitalization, Other)
  Sender: UCB
  Company Number: US-UCBSA-2024068683

PATIENT
  Age: 47 Year
  Sex: Male

DRUGS (1)
  1. LEVETIRACETAM [Suspect]
     Active Substance: LEVETIRACETAM
     Indication: Seizure
     Dosage: 1 GRAM, 2X/DAY (BID), INITIAL LOADING DOSE BEFORE TITRATING UP TO A DOSE OF 1 G EVERY 12 HOURS PER N

REACTIONS (2)
  - Acute kidney injury [Recovering/Resolving]
  - Treatment noncompliance [Unknown]
